FAERS Safety Report 7273891-7 (Version None)
Quarter: 2011Q1

REPORT INFORMATION
  Report Type: 
  Country: None (occurrence: None)
  Receive Date: 20110203
  Receipt Date: 20110127
  Transmission Date: 20110831
  Serious: Yes (Other)
  Sender: FDA-Public Use
  Company Number: US-PFIZER INC-2011020413

PATIENT
  Sex: Female
  Weight: 56.689 kg

DRUGS (2)
  1. INDOCIN [Concomitant]
     Indication: MIGRAINE
     Dosage: UNK
  2. LYRICA [Suspect]
     Indication: MIGRAINE
     Dosage: 50 MG, 3X/DAY
     Route: 048
     Dates: start: 20101101

REACTIONS (4)
  - ANXIETY [None]
  - DYSPNOEA [None]
  - AGITATION [None]
  - PANIC ATTACK [None]
